FAERS Safety Report 11359220 (Version 1)
Quarter: 2015Q3

REPORT INFORMATION
  Report Type: Report from Study
  Country: FR (occurrence: FR)
  Receive Date: 20150807
  Receipt Date: 20150807
  Transmission Date: 20151125
  Serious: Yes (Hospitalization, Other)
  Sender: FDA-Public Use
  Company Number: FR-GLAXOSMITHKLINE-FR2015GSK112870

PATIENT
  Age: 8 Decade
  Sex: Female

DRUGS (14)
  1. CORVASAL [Concomitant]
     Active Substance: LINSIDOMINE
     Dosage: 4 MG, TID
  2. EZETROL [Concomitant]
     Active Substance: EZETIMIBE
     Dosage: 2 DF, QD
  3. OMEGA-3-ACID ETHYL ESTERS. [Suspect]
     Active Substance: OMEGA-3-ACID ETHYL ESTERS
     Indication: ISCHAEMIC HEART DISEASE PROPHYLAXIS
     Dosage: UNK
     Dates: start: 20070927, end: 20080513
  4. LANTUS [Concomitant]
     Active Substance: INSULIN GLARGINE
     Dosage: 14 IU, UNK
  5. SMECTA [Concomitant]
     Active Substance: MONTMORILLONITE
     Dosage: 2 DF, QD
  6. PLAVIX [Concomitant]
     Active Substance: CLOPIDOGREL BISULFATE
  7. DOLIPRANE [Concomitant]
     Active Substance: ACETAMINOPHEN
     Dosage: 1 G, TID
  8. VASTAREL [Concomitant]
     Active Substance: TRIMETAZIDINE DIHYDROCHLORIDE
     Dosage: 2 DF, QD
  9. FORLAX [Concomitant]
     Active Substance: POLYETHYLENE GLYCOL 4000
     Dosage: 2 DF, QD
  10. AMLOR [Concomitant]
     Active Substance: AMLODIPINE BESYLATE
     Dosage: 1 DF, QD
  11. LASILIX [Concomitant]
     Active Substance: FUROSEMIDE
     Dosage: 1 DF, QD
  12. CARDENSIEL [Concomitant]
     Active Substance: BISOPROLOL FUMARATE
     Dosage: 2 DF, QD
  13. KARDEGIC [Concomitant]
     Active Substance: ASPIRIN LYSINE
     Dosage: 1 DF, QD
  14. COVERSYL [Concomitant]
     Active Substance: PERINDOPRIL
     Dosage: 2 MG, BID

REACTIONS (1)
  - Acute coronary syndrome [Unknown]

NARRATIVE: CASE EVENT DATE: 20080122
